FAERS Safety Report 20737776 (Version 3)
Quarter: 2022Q2

REPORT INFORMATION
  Report Type: Spontaneous
  Country: IT (occurrence: IT)
  Receive Date: 20220422
  Receipt Date: 20220531
  Transmission Date: 20220721
  Serious: Yes (Other)
  Sender: FDA-Public Use
  Company Number: IT-Accord-260022

PATIENT
  Age: 36 Year
  Sex: Female

DRUGS (2)
  1. CLOZAPINE [Suspect]
     Active Substance: CLOZAPINE
     Indication: Schizophrenia
     Dosage: 225 MILLIGRAM, ONCE A DAY
     Route: 065
  2. CLOZAPINE [Suspect]
     Active Substance: CLOZAPINE
     Dosage: TITRATION UP TO 225 MG/DAY
     Route: 065

REACTIONS (8)
  - Atelectasis [Recovered/Resolved]
  - Polyserositis [Recovered/Resolved]
  - Pleural effusion [Recovered/Resolved]
  - Serositis [Recovered/Resolved]
  - Sedation [Unknown]
  - Hypotension [Unknown]
  - Salivary hypersecretion [Unknown]
  - Tachycardia [Unknown]
